FAERS Safety Report 8862804 (Version 1)
Quarter: 2012Q4

REPORT INFORMATION
  Report Type: Report from Study
  Country: US (occurrence: US)
  Receive Date: 20121026
  Receipt Date: 20121026
  Transmission Date: 20130627
  Serious: Yes (Hospitalization)
  Sender: FDA-Public Use
  Company Number: US-JNJFOC-20121010153

PATIENT
  Age: 16 Year
  Sex: Male

DRUGS (3)
  1. REMICADE [Suspect]
     Indication: CROHN^S DISEASE
     Route: 042
     Dates: start: 20070324
  2. HUMIRA [Concomitant]
     Dates: start: 20071025
  3. HUMIRA [Concomitant]

REACTIONS (1)
  - Diarrhoea [Not Recovered/Not Resolved]
